FAERS Safety Report 6072394-5 (Version None)
Quarter: 2009Q1

REPORT INFORMATION
  Report Type: 
  Country: None (occurrence: None)
  Receive Date: 20090210
  Receipt Date: 20090203
  Transmission Date: 20090719
  Serious: Yes (Other)
  Sender: FDA-Public Use
  Company Number: CH-JNJFOC-20090200406

PATIENT
  Age: 20 Year
  Sex: Male

DRUGS (11)
  1. INVEGA [Suspect]
     Route: 048
  2. INVEGA [Suspect]
     Indication: SCHIZOPHRENIA, PARANOID TYPE
     Route: 048
  3. HALDOL [Suspect]
     Route: 048
  4. HALDOL [Suspect]
     Route: 048
  5. HALDOL [Suspect]
     Route: 048
  6. HALDOL [Suspect]
     Route: 048
  7. HALDOL [Suspect]
     Route: 048
  8. HALDOL [Suspect]
     Route: 048
  9. HALDOL [Suspect]
     Route: 048
  10. HALDOL [Suspect]
     Indication: SCHIZOPHRENIA, PARANOID TYPE
     Route: 048
  11. TEMESTA [Concomitant]
     Route: 048

REACTIONS (1)
  - DERMATITIS ALLERGIC [None]
